FAERS Safety Report 13222726 (Version 1)
Quarter: 2017Q1

REPORT INFORMATION
  Report Type: Other
  Country: US (occurrence: US)
  Receive Date: 20170212
  Receipt Date: 20170212
  Transmission Date: 20170428
  Serious: No
  Sender: FDA-Public Use
  Company Number: US-ACORDA-ACO_121916_2016

PATIENT
  Age: 60 Year
  Sex: Female
  Weight: 65.76 kg

DRUGS (3)
  1. BACLOFEN. [Concomitant]
     Active Substance: BACLOFEN
     Indication: DYSKINESIA
     Dosage: UNK
     Route: 065
     Dates: start: 201509
  2. AMPYRA [Suspect]
     Active Substance: DALFAMPRIDINE
     Indication: GAIT DISTURBANCE
     Dosage: 10 MG, BID
     Route: 048
     Dates: start: 201601, end: 201602
  3. COPAXONE [Concomitant]
     Active Substance: GLATIRAMER ACETATE
     Indication: PRODUCT USED FOR UNKNOWN INDICATION
     Dosage: UNK
     Route: 065
     Dates: start: 201509

REACTIONS (4)
  - Dyskinesia [Recovering/Resolving]
  - Paraesthesia [Recovering/Resolving]
  - Skin burning sensation [Recovered/Resolved]
  - Insomnia [Recovered/Resolved]

NARRATIVE: CASE EVENT DATE: 201601
